FAERS Safety Report 9319973 (Version 1)
Quarter: 2013Q2

REPORT INFORMATION
  Report Type: Spontaneous
  Country: US (occurrence: US)
  Receive Date: 20130530
  Receipt Date: 20130530
  Transmission Date: 20140414
  Serious: No
  Sender: FDA-Public Use
  Company Number: US-UPSHER-SMITH LABORATORIES, INC.-12001911

PATIENT
  Age: 59 Year
  Sex: Female

DRUGS (7)
  1. KLOR-CON TABLETS [Suspect]
     Indication: BLOOD POTASSIUM DECREASED
     Dosage: 10 MEQ, QD
     Route: 048
     Dates: start: 2011, end: 201207
  2. KLOR-CON TABLETS [Suspect]
     Dosage: 10 MEQ, BID
     Route: 048
     Dates: start: 201207
  3. CRESTOR                            /01588601/ [Concomitant]
     Dosage: UNK
  4. PROTONIX                           /01263201/ [Concomitant]
     Dosage: UNK
  5. LYRICA [Concomitant]
     Dosage: UNK
  6. AMBIEN [Concomitant]
     Dosage: UNK
  7. ASPIRIN [Concomitant]
     Dosage: UNK

REACTIONS (3)
  - Drug ineffective [Not Recovered/Not Resolved]
  - Medication residue present [Not Recovered/Not Resolved]
  - Blood potassium decreased [None]
